FAERS Safety Report 4952140-6 (Version None)
Quarter: 2006Q1

REPORT INFORMATION
  Report Type: 
  Country: None (occurrence: None)
  Receive Date: 20060320
  Receipt Date: 20060307
  Transmission Date: 20060701
  Serious: Yes (Hospitalization)
  Sender: FDA-Public Use
  Company Number: 2006021976

PATIENT
  Age: 25 Year
  Sex: Female

DRUGS (2)
  1. TAHOR (ATORVASTATIN) [Suspect]
     Indication: SUICIDE ATTEMPT
     Dosage: 100 MG 910 MG, 10 IN 1 D), ORAL
     Route: 048
     Dates: start: 20060120, end: 20060120
  2. ANTIDEPRESSANTS (ANTIDEPRESSANTS) [Concomitant]

REACTIONS (2)
  - SELF-MEDICATION [None]
  - SUICIDE ATTEMPT [None]
